FAERS Safety Report 14784988 (Version 2)
Quarter: 2018Q2

REPORT INFORMATION
  Report Type: Spontaneous
  Country: IT (occurrence: IT)
  Receive Date: 20180420
  Receipt Date: 20180626
  Transmission Date: 20180711
  Serious: Yes (Death, Hospitalization, Other)
  Sender: FDA-Public Use
  Company Number: IT-PFIZER INC-2018151282

PATIENT
  Age: 76 Year
  Sex: Male
  Weight: 47 kg

DRUGS (19)
  1. PLAVIX [Concomitant]
     Active Substance: CLOPIDOGREL BISULFATE
     Dosage: UNK
     Route: 048
  2. LASIX [Concomitant]
     Active Substance: FUROSEMIDE
     Dosage: 25 MG, 1X/DAY
  3. GLYCERYL TRINITRATE [Concomitant]
     Active Substance: NITROGLYCERIN
     Dosage: UNK
     Route: 042
  4. YOVIS [Concomitant]
     Dosage: UNK
  5. ATORVASTATIN [Concomitant]
     Active Substance: ATORVASTATIN
     Dosage: 40 MG, 1X/DAY
     Route: 048
  6. LANTUS [Concomitant]
     Active Substance: INSULIN GLARGINE
     Indication: DIABETES MELLITUS
     Dosage: 12 IU, 1X/DAY
     Route: 058
  7. BISOPROLOL FUMARATE. [Concomitant]
     Active Substance: BISOPROLOL FUMARATE
     Dosage: 5 MG, 1X/DAY
     Route: 048
  8. ACETYLSALICYLIC ACID [Concomitant]
     Active Substance: ASPIRIN
     Dosage: 100 MG, 1X/DAY
     Route: 048
  9. MYCOSTATIN [Concomitant]
     Active Substance: NYSTATIN
     Dosage: UNK
  10. ESOMEPRAZOLE SODIUM. [Concomitant]
     Active Substance: ESOMEPRAZOLE SODIUM
     Dosage: 20 MG, 1X/DAY
     Route: 048
  11. VANCOMYCIN HCL [Suspect]
     Active Substance: VANCOMYCIN HYDROCHLORIDE
     Indication: PNEUMONITIS
     Dosage: UNK
     Dates: start: 20180212, end: 20180212
  12. GENTAMICIN SULFATE. [Suspect]
     Active Substance: GENTAMICIN SULFATE
     Indication: PNEUMONITIS
     Dosage: UNK
     Dates: start: 20180212, end: 20180225
  13. HUMALOG [Concomitant]
     Active Substance: INSULIN LISPRO
     Indication: DIABETES MELLITUS
     Dosage: 24 IU, 1X/DAY
     Route: 058
  14. KCL RETARD ZYMA [Concomitant]
     Active Substance: POTASSIUM CHLORIDE
     Dosage: 600 MG, 1X/DAY
     Route: 048
  15. CLENIL [Concomitant]
     Active Substance: BECLOMETHASONE DIPROPIONATE
     Dosage: UNK
     Route: 055
  16. DUOPLAVIN [Concomitant]
     Active Substance: ASPIRIN\CLOPIDOGREL
     Dosage: UNK
     Route: 048
  17. RIFAMPICIN [Suspect]
     Active Substance: RIFAMPIN
     Indication: PNEUMONITIS
     Dosage: UNK
     Dates: start: 20180212, end: 20180225
  18. BREVA [Concomitant]
     Active Substance: ALBUTEROL\IPRATROPIUM
     Dosage: UNK
     Route: 055
  19. AMLODIPINE [Concomitant]
     Active Substance: AMLODIPINE BESYLATE
     Dosage: 10 MG, 1X/DAY
     Route: 048

REACTIONS (2)
  - Toxic epidermal necrolysis [Fatal]
  - Stevens-Johnson syndrome [Fatal]

NARRATIVE: CASE EVENT DATE: 20180224
